FAERS Safety Report 9053796 (Version 3)
Quarter: 2013Q2

REPORT INFORMATION
  Report Type: Spontaneous
  Country: US (occurrence: US)
  Receive Date: 20130207
  Receipt Date: 20130415
  Transmission Date: 20140414
  Serious: Yes (Hospitalization)
  Sender: FDA-Public Use
  Company Number: US-GLAXOSMITHKLINE-A1007900A

PATIENT
  Age: 44 Year
  Sex: Female
  Weight: 72 kg

DRUGS (7)
  1. FLOLAN [Suspect]
     Indication: PULMONARY ARTERIAL HYPERTENSION
     Dosage: 6NGKM CONTINUOUS
     Route: 042
     Dates: start: 20121204
  2. DIGOXIN [Concomitant]
  3. COUMADIN [Concomitant]
  4. DIURETICS [Concomitant]
  5. ADCIRCA [Concomitant]
  6. TRACLEER [Concomitant]
  7. LASIX [Concomitant]

REACTIONS (14)
  - Transfusion [Unknown]
  - Lung disorder [Unknown]
  - Pruritus [Unknown]
  - Flushing [Unknown]
  - Scab [Unknown]
  - Headache [Unknown]
  - Gastric disorder [Unknown]
  - Malaise [Unknown]
  - Dyspnoea [Unknown]
  - Nasopharyngitis [Unknown]
  - Cough [Unknown]
  - Palpitations [Unknown]
  - Dizziness [Unknown]
  - Asthma [Unknown]
